FAERS Safety Report 9956159 (Version 1)
Quarter: 2014Q1

REPORT INFORMATION
  Report Type: Report from Study
  Country: US (occurrence: US)
  Receive Date: 20140304
  Receipt Date: 20140304
  Transmission Date: 20141002
  Serious: No
  Sender: FDA-Public Use
  Company Number: US-ABBVIE-13P-163-1090861-00

PATIENT
  Age: 71 Year
  Sex: Male

DRUGS (9)
  1. HUMIRA [Suspect]
     Indication: RHEUMATOID ARTHRITIS
     Dates: start: 201303, end: 20130516
  2. COZAAR [Concomitant]
     Indication: HYPERTENSION
     Dosage: 25MG-1/2 PILL DAILY
  3. NEURONTIN [Concomitant]
     Indication: PAIN
     Dosage: 3 TIMES A DAY BUT ONLY TAKES 1 TIME A DAY
  4. NEXIUM [Concomitant]
     Indication: GASTROOESOPHAGEAL REFLUX DISEASE
  5. VALIUM [Concomitant]
     Indication: PERSONALITY CHANGE
  6. METHOTREXATE [Concomitant]
     Indication: RHEUMATOID ARTHRITIS
     Dosage: 3 PILLS EVERY 7 DAYS
  7. OXYCODONE [Concomitant]
     Indication: SPINAL PAIN
     Dosage: 30MG LONG-ACTING
  8. DIAZEPAM [Concomitant]
     Indication: PRODUCT USED FOR UNKNOWN INDICATION
     Dosage: 1-2 TIMES EVERY 2 WEEKS
  9. OXYCODONE [Concomitant]
     Indication: SPINAL PAIN
     Dosage: 30MG SHORT-ACTING EVERY 6 HOURS AS NEEDED

REACTIONS (10)
  - Feeling abnormal [Not Recovered/Not Resolved]
  - Polyuria [Unknown]
  - Urticaria [Unknown]
  - Local swelling [Not Recovered/Not Resolved]
  - Cough [Unknown]
  - Eye irritation [Unknown]
  - Pain in extremity [Unknown]
  - Abdominal pain upper [Unknown]
  - Fatigue [Unknown]
  - Headache [Recovered/Resolved]
